APPROVED DRUG PRODUCT: ESTRAGUARD
Active Ingredient: DIENESTROL
Strength: 0.01%
Dosage Form/Route: CREAM;VAGINAL
Application: A084436 | Product #001
Applicant: SOLVAY PHARMACEUTICALS
Approved: Approved Prior to Jan 1, 1982 | RLD: No | RS: No | Type: DISCN